FAERS Safety Report 6667098-1 (Version None)
Quarter: 2010Q2

REPORT INFORMATION
  Report Type: 
  Country: None (occurrence: None)
  Receive Date: 20100401
  Receipt Date: 20100325
  Transmission Date: 20101027
  Serious: Yes (Death)
  Sender: FDA-Public Use
  Company Number: AE-310-078 (MYLAN PHARMACEUTICALS CROSS REF# 2009S1006733)

PATIENT
  Age: 69 Year
  Sex: Male

DRUGS (6)
  1. LIDODERM [Suspect]
     Indication: ARTHRALGIA
     Dosage: 2-3 PATCHES A DAY
     Dates: start: 20070601, end: 20080903
  2. NEURONTIN [Suspect]
     Dosage: 1200MG TID
  3. TRAMADOL HCL [Suspect]
     Dosage: 50MG TID OR QID
  4. OXYCODONE HCL [Suspect]
     Dosage: 10MG BID
  5. FENTANYL [Suspect]
     Dosage: 75 MCG
  6. EPIDURAL STEROID INJECTIONS [Concomitant]

REACTIONS (11)
  - ABASIA [None]
  - CARDIAC DISORDER [None]
  - FLUID RETENTION [None]
  - GAIT DISTURBANCE [None]
  - MULTI-ORGAN FAILURE [None]
  - MULTIPLE DRUG OVERDOSE [None]
  - RESPIRATORY ARREST [None]
  - SALIVA DISCOLOURATION [None]
  - SOMNOLENCE [None]
  - URINARY INCONTINENCE [None]
  - VOMITING [None]
